FAERS Safety Report 7362779-9 (Version None)
Quarter: 2011Q1

REPORT INFORMATION
  Report Type: 
  Country: None (occurrence: None)
  Receive Date: 20110321
  Receipt Date: 20110308
  Transmission Date: 20110831
  Serious: No
  Sender: FDA-Public Use
  Company Number: US-BIOGENIDEC-2011BI005413

PATIENT
  Age: 33 Year
  Sex: Female

DRUGS (2)
  1. TYSABRI [Suspect]
     Indication: MULTIPLE SCLEROSIS
     Route: 042
     Dates: start: 20071002
  2. TYSABRI [Suspect]
     Route: 042
     Dates: start: 20060927, end: 20070417

REACTIONS (6)
  - NAUSEA [None]
  - DIZZINESS [None]
  - VISION BLURRED [None]
  - VISUAL IMPAIRMENT [None]
  - FLUSHING [None]
  - FATIGUE [None]
